FAERS Safety Report 7316007-0 (Version None)
Quarter: 2011Q1

REPORT INFORMATION
  Report Type: 
  Country: None (occurrence: None)
  Receive Date: 20110225
  Receipt Date: 20110214
  Transmission Date: 20110831
  Serious: Yes (Other)
  Sender: FDA-Public Use
  Company Number: PHHY2009BR18389

PATIENT
  Sex: Female
  Weight: 64 kg

DRUGS (5)
  1. LANTUS [Concomitant]
     Indication: DIABETES MELLITUS
     Dosage: 24 U, QD
     Route: 058
     Dates: start: 20080101
  2. NOVORAPID [Concomitant]
     Indication: DIABETES MELLITUS
     Dosage: UNK
     Route: 058
     Dates: start: 20090101
  3. RASILEZ [Suspect]
     Indication: RENAL IMPAIRMENT
     Dosage: HALF TABLET (300 MG) DAILY
     Route: 048
     Dates: start: 20090101
  4. RASILEZ [Suspect]
     Dosage: 150 MG
     Route: 048
  5. ENALAPRIL MALEATE [Concomitant]
     Indication: RENAL IMPAIRMENT
     Dosage: 10 MG, BID,1 TABLET IN THE MORNING AND 1 IN THE EVENING
     Route: 048
     Dates: start: 20090101

REACTIONS (5)
  - WRONG TECHNIQUE IN DRUG USAGE PROCESS [None]
  - RENAL COLIC [None]
  - CHILLS [None]
  - URINARY TRACT INFECTION [None]
  - URINE ODOUR ABNORMAL [None]
